FAERS Safety Report 5252851-1 (Version None)
Quarter: 2007Q1

REPORT INFORMATION
  Report Type: 
  Country: None (occurrence: None)
  Receive Date: 20070227
  Receipt Date: 20070220
  Transmission Date: 20070707
  Serious: Yes (Death)
  Sender: FDA-Public Use
  Company Number: 236846

PATIENT
  Age: 83 Year
  Sex: Female

DRUGS (5)
  1. ACTIVACIN (ALTEPLASE) PWDR + SOLVENT, INFUSION SOLN [Suspect]
     Indication: CEREBRAL ARTERY EMBOLISM
     Dosage: 1200000 IU, SINGLE, INTRAVENOUS
     Route: 042
     Dates: start: 20060527, end: 20060527
  2. GLYCEOL (GLYCERIN) [Concomitant]
  3. ALEVIATION (PHENYTOIN SODIUM) [Concomitant]
  4. RADICUT (EDARAVONE) [Concomitant]
  5. FAMOTIDINE [Concomitant]

REACTIONS (1)
  - VENTRICULAR FLUTTER [None]
